FAERS Safety Report 4907486-4 (Version None)
Quarter: 2006Q1

REPORT INFORMATION
  Report Type: 
  Country: None (occurrence: None)
  Receive Date: 20060208
  Receipt Date: 20060208
  Transmission Date: 20060701
  Serious: Yes (Hospitalization)
  Sender: FDA-Public Use
  Company Number: None

PATIENT
  Sex: Male
  Weight: 101.6057 kg

DRUGS (2)
  1. PAXIL [Suspect]
     Indication: DEPRESSION
     Dosage: 1 PILL 1 X DAY PO
     Route: 048
     Dates: start: 19970101, end: 20050905
  2. ULTRAM [Suspect]
     Indication: PAIN
     Dosage: 2 PILLS 4 X DAY PO
     Route: 048
     Dates: start: 19970101, end: 20050905

REACTIONS (4)
  - ABNORMAL BEHAVIOUR [None]
  - ANGER [None]
  - DRUG INTERACTION [None]
  - THINKING ABNORMAL [None]
